FAERS Safety Report 6334729-5 (Version None)
Quarter: 2009Q3

REPORT INFORMATION
  Report Type: 
  Country: None (occurrence: None)
  Receive Date: 20090831
  Receipt Date: 20090818
  Transmission Date: 20100115
  Serious: Yes (Hospitalization, Other)
  Sender: FDA-Public Use
  Company Number: AU-PFIZER INC-2009232455

PATIENT
  Age: 43 Year

DRUGS (3)
  1. CHAMPIX [Suspect]
     Indication: SMOKING CESSATION THERAPY
     Dosage: 0.5 MG, UNK
     Route: 048
     Dates: start: 20090507, end: 20090528
  2. CANNABIS [Suspect]
     Indication: DRUG ABUSE
  3. ALCOHOL [Suspect]
     Indication: ALCOHOL ABUSE

REACTIONS (12)
  - ABNORMAL BEHAVIOUR [None]
  - ACTIVITIES OF DAILY LIVING IMPAIRED [None]
  - AGITATION [None]
  - ALCOHOL ABUSE [None]
  - CONFUSIONAL STATE [None]
  - CRYING [None]
  - DELUSION [None]
  - DEPRESSION [None]
  - DYSTHYMIC DISORDER [None]
  - HALLUCINATION [None]
  - PANIC ATTACK [None]
  - TOBACCO USER [None]
